FAERS Safety Report 6754005-6 (Version None)
Quarter: 2010Q2

REPORT INFORMATION
  Report Type: 
  Country: None (occurrence: None)
  Receive Date: 20100603
  Receipt Date: 20100526
  Transmission Date: 20101027
  Serious: Yes (Hospitalization)
  Sender: FDA-Public Use
  Company Number: B0657209A

PATIENT
  Age: 46 Year
  Sex: Male
  Weight: 82 kg

DRUGS (2)
  1. VENTOLIN [Suspect]
     Indication: WHEEZING
     Dates: start: 20100401
  2. TROPICAMIDE [Suspect]
     Indication: OPHTHALMOLOGICAL EXAMINATION
     Dates: start: 20100430

REACTIONS (4)
  - HYPOTENSION [None]
  - NAUSEA [None]
  - PALLOR [None]
  - SYNCOPE [None]
